FAERS Safety Report 23194455 (Version 2)
Quarter: 2023Q4

REPORT INFORMATION
  Report Type: Spontaneous
  Country: US (occurrence: US)
  Receive Date: 20231117
  Receipt Date: 20231122
  Transmission Date: 20240110
  Serious: No
  Sender: FDA-Public Use
  Company Number: US-SANOFI-01837966

PATIENT
  Age: 81 Year
  Sex: Male

DRUGS (1)
  1. LANTUS SOLOSTAR [Suspect]
     Active Substance: INSULIN GLARGINE
     Indication: Type 2 diabetes mellitus
     Dosage: 40 IU, Q12H  SLIDING SCALE
     Route: 065

REACTIONS (4)
  - Blood glucose increased [Unknown]
  - Poor quality product administered [Unknown]
  - Product storage error [Unknown]
  - Inappropriate schedule of product administration [Unknown]
